FAERS Safety Report 10041360 (Version 3)
Quarter: 2014Q2

REPORT INFORMATION
  Report Type: Report from Study
  Country: FR (occurrence: FR)
  Receive Date: 20140327
  Receipt Date: 20140507
  Transmission Date: 20141212
  Serious: Yes (Hospitalization)
  Sender: FDA-Public Use
  Company Number: FR-SA-2014SA036008

PATIENT
  Sex: Male
  Weight: 75 kg

DRUGS (17)
  1. CAMPATH [Suspect]
     Indication: CHRONIC LYMPHOCYTIC LEUKAEMIA RECURRENT
     Dosage: 6 INFUSIONS
     Route: 065
     Dates: start: 20131021
  2. DEXAMETHASONE [Concomitant]
     Indication: CHRONIC LYMPHOCYTIC LEUKAEMIA RECURRENT
     Dosage: EVERY 4 WEEKS
  3. DEXAMETHASONE [Concomitant]
     Indication: CHRONIC LYMPHOCYTIC LEUKAEMIA RECURRENT
     Dates: start: 20121114, end: 20121227
  4. RITUXIMAB [Concomitant]
     Indication: CHRONIC LYMPHOCYTIC LEUKAEMIA RECURRENT
     Dates: start: 20121114, end: 20121227
  5. CYCLOPHOSPHAMIDE [Concomitant]
     Indication: CHRONIC LYMPHOCYTIC LEUKAEMIA RECURRENT
     Dates: start: 20121114, end: 20121227
  6. ALDARA [Concomitant]
  7. ALL OTHER THERAPEUTIC PRODUCTS [Concomitant]
     Dates: start: 20140310, end: 20140310
  8. ALL OTHER THERAPEUTIC PRODUCTS [Concomitant]
     Dates: start: 20140311, end: 20140311
  9. ALL OTHER THERAPEUTIC PRODUCTS [Concomitant]
     Dates: start: 20140312, end: 20140312
  10. BACTRIM [Concomitant]
  11. SPECIAFOLDINE [Concomitant]
  12. ZELITREX [Concomitant]
  13. TRIATEC [Concomitant]
  14. TEMESTA [Concomitant]
  15. CORTICOSTEROIDS, COMB WITH ANTIBIOTICS [Concomitant]
     Indication: PROPHYLAXIS
  16. PYOSTACINE [Concomitant]
  17. TIENAM [Concomitant]

REACTIONS (16)
  - Disease progression [Recovering/Resolving]
  - Hypoxia [Recovering/Resolving]
  - Basal cell carcinoma [Recovering/Resolving]
  - Pancytopenia [Recovered/Resolved]
  - Pancytopenia [Recovering/Resolving]
  - Pyrexia [Recovering/Resolving]
  - Haemoglobin decreased [Recovering/Resolving]
  - Thrombocytopenia [Recovering/Resolving]
  - Interstitial lung disease [Recovering/Resolving]
  - Blood fibrinogen increased [Recovering/Resolving]
  - C-reactive protein increased [Recovering/Resolving]
  - Procalcitonin increased [Recovering/Resolving]
  - Haptoglobin increased [Recovering/Resolving]
  - Brain natriuretic peptide increased [Recovering/Resolving]
  - Pleural effusion [Recovering/Resolving]
  - Staphylococcal sepsis [Recovering/Resolving]
